FAERS Safety Report 8187601-2 (Version None)
Quarter: 2012Q1

REPORT INFORMATION
  Report Type: 
  Country: None (occurrence: None)
  Receive Date: 20120306
  Receipt Date: 20120302
  Transmission Date: 20120608
  Serious: Yes (Death, Other)
  Sender: FDA-Public Use
  Company Number: PHHY2012US018476

PATIENT
  Age: 27 Year
  Sex: Female

DRUGS (8)
  1. LORAZEPAM [Suspect]
     Indication: AGITATION
     Dosage: 2 MG, UNK
     Route: 042
  2. LORAZEPAM [Suspect]
     Dosage: 2 MG, UNK
     Route: 042
  3. SERTRALINE HYDROCHLORIDE [Suspect]
     Dosage: 50 MG, UNK
  4. QUETIAPINE [Suspect]
     Dosage: 25 MG, UNK
  5. SERTRALINE HYDROCHLORIDE [Suspect]
     Dosage: 50 MG, UNK
  6. LORAZEPAM [Suspect]
     Dosage: 1 MG, UNK
     Route: 042
  7. HALOPERIDOL [Suspect]
     Indication: AGITATION
     Dosage: 5 MG, UNK
     Route: 030
  8. RISPERIDONE [Suspect]
     Dosage: 0.5 MG AT BEDTIME

REACTIONS (4)
  - CARDIO-RESPIRATORY ARREST [None]
  - UNRESPONSIVE TO STIMULI [None]
  - PULMONARY EMBOLISM [None]
  - FALL [None]
